FAERS Safety Report 21391675 (Version 2)
Quarter: 2023Q2

REPORT INFORMATION
  Report Type: Spontaneous
  Country: US (occurrence: US)
  Receive Date: 20220929
  Receipt Date: 20230623
  Transmission Date: 20230721
  Serious: No
  Sender: FDA-Public Use
  Company Number: US-BRISTOL-MYERS SQUIBB COMPANY-2022-112178

PATIENT
  Age: 78 Year
  Sex: Female
  Weight: 73.94 kg

DRUGS (1)
  1. REVLIMID [Suspect]
     Active Substance: LENALIDOMIDE
     Indication: Plasma cell myeloma
     Dosage: DAILY 21 DAYS
     Route: 048
     Dates: start: 202104

REACTIONS (1)
  - Rash [Unknown]

NARRATIVE: CASE EVENT DATE: 20220901
